FAERS Safety Report 21034484 (Version 1)
Quarter: 2022Q2

REPORT INFORMATION
  Report Type: Spontaneous
  Country: US (occurrence: None)
  Receive Date: 20220630
  Receipt Date: 20220630
  Transmission Date: 20220721
  Serious: Yes (Other)
  Sender: FDA-Public Use
  Company Number: None

PATIENT
  Age: 47 Year
  Sex: Female
  Weight: 137.89 kg

DRUGS (6)
  1. MIRENA [Suspect]
     Active Substance: LEVONORGESTREL
  2. Hydrochorothiozide [Concomitant]
  3. METOPROLOL [Concomitant]
     Active Substance: METOPROLOL
  4. MEDROXYPROGESTERONE [Concomitant]
     Active Substance: MEDROXYPROGESTERONE
  5. daily multi-vitamin [Concomitant]
  6. HERBALS [Concomitant]
     Active Substance: HERBALS

REACTIONS (8)
  - Photosensitivity reaction [None]
  - Erythema [None]
  - Swelling face [None]
  - Pruritus [None]
  - Pruritus [None]
  - Pruritus [None]
  - Malaise [None]
  - Rash [None]
